FAERS Safety Report 13022758 (Version 2)
Quarter: 2017Q3

REPORT INFORMATION
  Report Type: Spontaneous
  Country: DE (occurrence: DE)
  Receive Date: 20161213
  Receipt Date: 20170807
  Transmission Date: 20171127
  Serious: Yes (Hospitalization)
  Sender: FDA-Public Use
  Company Number: DE-TEVA-716865GER

PATIENT
  Age: 64 Year
  Sex: Female
  Weight: 54 kg

DRUGS (17)
  1. L-THYROXIN [Concomitant]
     Active Substance: LEVOTHYROXINE SODIUM
     Indication: HYPOTHYROIDISM
     Dosage: 50 MICROGRAM DAILY;
     Dates: start: 20160603
  2. METOHEXAL [Concomitant]
     Active Substance: METOPROLOL SUCCINATE
     Dosage: 47.5 MILLIGRAM DAILY;
     Route: 048
  3. VITARENAL [Concomitant]
     Dosage: 1 DOSAGE FORMS DAILY;
     Route: 048
  4. ACICLOVIR [Suspect]
     Active Substance: ACYCLOVIR
     Indication: ENCEPHALITIS
     Route: 048
     Dates: start: 20161110, end: 20161115
  5. DECOSTRIOL [Concomitant]
     Active Substance: CALCITRIOL
     Route: 048
  6. MAGNESIUM [Concomitant]
     Active Substance: MAGNESIUM
     Dosage: 2 DOSAGE FORMS DAILY;
     Route: 048
  7. COTRIM FORTE [Concomitant]
     Active Substance: SULFAMETHOXAZOLE\TRIMETHOPRIM
     Route: 048
  8. DEKRISTOL [Concomitant]
     Active Substance: CHOLECALCIFEROL
  9. PANTOZOL [Concomitant]
     Active Substance: PANTOPRAZOLE SODIUM
     Dosage: 40 MILLIGRAM DAILY;
     Route: 048
  10. LERCANIDIPIN [Concomitant]
     Active Substance: LERCANIDIPINE
     Dosage: 20 MILLIGRAM DAILY;
     Route: 048
  11. DOXAZOSIN [Concomitant]
     Active Substance: DOXAZOSIN\DOXAZOSIN MESYLATE
     Dosage: 8 MILLIGRAM DAILY;
     Route: 048
  12. NEPRESSOL [Concomitant]
     Route: 048
  13. CALCIUMCARBONAT [Concomitant]
     Dosage: 1000 MILLIGRAM DAILY;
     Route: 048
  14. DARZALEX [Suspect]
     Active Substance: DARATUMUMAB
     Indication: PLASMA CELL MYELOMA
     Route: 042
     Dates: start: 20160729, end: 20161111
  15. TOREM [Concomitant]
     Active Substance: TORSEMIDE
     Dosage: 200 MILLIGRAM DAILY;
     Route: 048
  16. DELIX [Concomitant]
     Active Substance: RAMIPRIL
     Dosage: 10 MILLIGRAM DAILY;
     Route: 048
  17. MOXONIDIN [Concomitant]
     Active Substance: MOXONIDINE
     Dosage: .6 MILLIGRAM DAILY;
     Route: 048

REACTIONS (3)
  - Personality change [Recovering/Resolving]
  - Pyrexia [Recovering/Resolving]
  - Infection [Recovering/Resolving]

NARRATIVE: CASE EVENT DATE: 20161112
